FAERS Safety Report 9369977 (Version 2)
Quarter: 2013Q3

REPORT INFORMATION
  Report Type: Spontaneous
  Country: US (occurrence: US)
  Receive Date: 20130626
  Receipt Date: 20130816
  Transmission Date: 20140515
  Serious: Yes (Other)
  Sender: FDA-Public Use
  Company Number: US-BAYER-2013-075841

PATIENT
  Age: 23 Year
  Sex: Female
  Weight: 42.63 kg

DRUGS (3)
  1. MIRENA [Suspect]
     Indication: CONTRACEPTION
     Dosage: 20 MCG/24HR, CONT
     Route: 015
     Dates: start: 2008
  2. MIRENA [Suspect]
     Indication: MENSTRUAL CYCLE MANAGEMENT
  3. METHADONE [Concomitant]
     Indication: PELVIC PAIN
     Dosage: 20 MG, QD
     Dates: start: 20120101

REACTIONS (3)
  - Cervix carcinoma [None]
  - Amenorrhoea [None]
  - Dyspareunia [None]
